FAERS Safety Report 5158664-3 (Version None)
Quarter: 2006Q4

REPORT INFORMATION
  Report Type: 
  Country: None (occurrence: None)
  Receive Date: 20061117
  Receipt Date: 19281116
  Transmission Date: 20070319
  Serious: Yes (Hospitalization)
  Sender: FDA-Public Use
  Company Number: SEWYE538215NOV06

PATIENT
  Age: 77 Year
  Sex: Female

DRUGS (2)
  1. EFFEXOR [Suspect]
     Indication: DEPRESSION
     Dosage: 75 MG 1X PER 1 DAY; ORAL
     Route: 048
     Dates: start: 20061016
  2. DIOVAN HCT [Suspect]
     Dosage: ORAL
     Route: 048

REACTIONS (6)
  - BLOOD BILIRUBIN INCREASED [None]
  - BLOOD LACTATE DEHYDROGENASE INCREASED [None]
  - HAEMOGLOBIN DECREASED [None]
  - HYPONATRAEMIC ENCEPHALOPATHY [None]
  - TRANSFERRIN DECREASED [None]
  - URINE SODIUM DECREASED [None]
